FAERS Safety Report 22036602 (Version 2)
Quarter: 2023Q1

REPORT INFORMATION
  Report Type: Spontaneous
  Country: IT (occurrence: IT)
  Receive Date: 20230225
  Receipt Date: 20230225
  Transmission Date: 20230418
  Serious: Yes (Hospitalization)
  Sender: FDA-Public Use
  Company Number: IT-ROCHE-3254421

PATIENT
  Age: 79 Year
  Sex: Female
  Weight: 70 kg

DRUGS (17)
  1. LETROZOLE [Suspect]
     Active Substance: LETROZOLE
     Indication: HER2 positive breast cancer
     Dosage: 2.5 MILLIGRAM, ONCE A DAY (MOST RECENT DOSE PRIOR TO AE 02/MAR/2020, FREQUENCY ONCE )
     Route: 048
     Dates: start: 20191030
  2. PACLITAXEL [Suspect]
     Active Substance: PACLITAXEL
     Indication: HER2 positive breast cancer
     Dosage: 80 MILLIGRAM/SQ. METER, EVERY WEEK
     Route: 042
     Dates: start: 20190509
  3. CAPECITABINE [Suspect]
     Active Substance: CAPECITABINE
     Indication: HER2 positive breast cancer
     Dosage: 2000 MILLIGRAM, 2 WEEK (FREQUENCY:ONCEMOST RECENT DOSE PRIOR TO THE EVENT: 1/MAR/2021)
     Route: 048
     Dates: start: 20200702
  4. PERTUZUMAB [Suspect]
     Active Substance: PERTUZUMAB
     Indication: HER2 positive breast cancer
     Dosage: 420 MILLIGRAM, 3 MILLIGRAM (ROA:INTRAVENOUS (NOT OTHERWISE SPECIFIED),FREQUENCY:ONCEMOST RECENT DOSE
     Route: 042
     Dates: start: 20190530
  5. TRASTUZUMAB [Suspect]
     Active Substance: TRASTUZUMAB
     Indication: HER2 positive breast cancer
     Dosage: 6 MILLIGRAM/KILOGRAM, 3 WEEK (ROA:INTRAVENOUS (NOT OTHERWISE SPECIFIED) ,FREQUNCY:ONCEMOST RECENT DO
     Route: 042
     Dates: start: 20190530, end: 20200214
  6. TRASTUZUMAB [Suspect]
     Active Substance: TRASTUZUMAB
     Dosage: 6 MILLIGRAM/KILOGRAM, 3 WEEK(MOST RECENT DOSE PRIOR TO AE 2/JUL/2020ROA: INTRAVENOUS (NOT OTHERWISE
     Route: 042
     Dates: start: 20200310
  7. LEVOTHYROXINE SODIUM [Concomitant]
     Active Substance: LEVOTHYROXINE SODIUM
     Indication: Product used for unknown indication
     Dosage: UNK (ONGOING)
     Route: 065
  8. PREGABALIN [Concomitant]
     Active Substance: PREGABALIN
     Indication: Product used for unknown indication
     Dosage: UNK (ONGOING)
     Route: 065
     Dates: start: 20210119
  9. NORMAST [Concomitant]
     Indication: Product used for unknown indication
     Dosage: ONGOING
     Route: 065
     Dates: start: 20210119
  10. LEVACECARNINE HYDROCHLORIDE [Concomitant]
     Active Substance: LEVACECARNINE HYDROCHLORIDE
     Indication: Product used for unknown indication
     Dosage: ONGOING
     Route: 065
     Dates: start: 20210119
  11. CITALOPRAM [Concomitant]
     Active Substance: CITALOPRAM HYDROBROMIDE
     Indication: Product used for unknown indication
     Dosage: UNK (ONGOING)
     Route: 065
     Dates: start: 20200715
  12. LOPERAMIDE HYDROCHLORIDE [Concomitant]
     Active Substance: LOPERAMIDE HYDROCHLORIDE
     Indication: Product used for unknown indication
     Dosage: UNK (ONGOING)
     Route: 065
  13. ACETAMINOPHEN\OXYCODONE HYDROCHLORIDE [Concomitant]
     Active Substance: ACETAMINOPHEN\OXYCODONE HYDROCHLORIDE
     Indication: Product used for unknown indication
     Dosage: UNK (ONGOING)
     Route: 065
     Dates: start: 20201022
  14. LACTULOSE [Concomitant]
     Active Substance: LACTULOSE
     Indication: Product used for unknown indication
     Dosage: UNK
     Route: 065
  15. TAZAROTENE [Concomitant]
     Active Substance: TAZAROTENE
     Indication: Product used for unknown indication
     Dosage: UNK
     Route: 065
  16. PALMIDROL [Concomitant]
     Active Substance: PALMIDROL
     Indication: Product used for unknown indication
     Dosage: UNK (ON GOING)
     Route: 065
     Dates: start: 20210119
  17. NEURONTIN [Concomitant]
     Active Substance: GABAPENTIN
     Indication: Product used for unknown indication
     Dosage: UNK
     Route: 065

REACTIONS (1)
  - Anal haemorrhage [Recovered/Resolved]

NARRATIVE: CASE EVENT DATE: 20221028
